FAERS Safety Report 6978083-4 (Version None)
Quarter: 2010Q3

REPORT INFORMATION
  Report Type: 
  Country: None (occurrence: None)
  Receive Date: 20100913
  Receipt Date: 20100830
  Transmission Date: 20110219
  Serious: Yes (Hospitalization)
  Sender: FDA-Public Use
  Company Number: US-ELI_LILLY_AND_COMPANY-US201009000654

PATIENT
  Sex: Male

DRUGS (3)
  1. FORTEO [Suspect]
     Indication: OSTEOPOROSIS
     Dosage: 20 UG, DAILY (1/D)
  2. COUMADIN [Concomitant]
  3. LOPRESSOR [Concomitant]

REACTIONS (5)
  - ATRIAL FLUTTER [None]
  - CARDIAC DISORDER [None]
  - DIABETES MELLITUS [None]
  - FATIGUE [None]
  - HEART RATE INCREASED [None]
